FAERS Safety Report 16113470 (Version 4)
Quarter: 2019Q2

REPORT INFORMATION
  Report Type: Spontaneous
  Country: US (occurrence: US)
  Receive Date: 20190325
  Receipt Date: 20190619
  Transmission Date: 20190711
  Serious: No
  Sender: FDA-Public Use
  Company Number: US-PFIZER INC-2019125297

PATIENT
  Age: 34 Year
  Sex: Female
  Weight: 130 kg

DRUGS (3)
  1. IBRANCE [Suspect]
     Active Substance: PALBOCICLIB
     Indication: BREAST CANCER METASTATIC
     Dosage: 125 MG, CYCLIC (TAKE 1 CAP. EVERY DAY FOR 21 DAYS ON AND 7 DAYS OFF)
     Route: 048
     Dates: start: 20190228
  2. LETROZOLE. [Concomitant]
     Active Substance: LETROZOLE
     Dosage: UNK
  3. IBRANCE [Suspect]
     Active Substance: PALBOCICLIB
     Dosage: 125 MG, CYCLIC (DAY 1-21 Q 28 DAYS)
     Route: 048
     Dates: start: 20190308

REACTIONS (19)
  - Product dose omission [Unknown]
  - Respiratory tract congestion [Unknown]
  - Malaise [Unknown]
  - Vomiting [Unknown]
  - Insomnia [Unknown]
  - Asthenia [Unknown]
  - Dehydration [Unknown]
  - Back pain [Unknown]
  - Urinary incontinence [Unknown]
  - Proctalgia [Unknown]
  - Musculoskeletal stiffness [Unknown]
  - Decreased appetite [Unknown]
  - Pain [Unknown]
  - Chromaturia [Unknown]
  - Delusional perception [Unknown]
  - Confusional state [Unknown]
  - Disorientation [Unknown]
  - Urinary tract infection [Unknown]
  - Depression [Unknown]

NARRATIVE: CASE EVENT DATE: 2019
